FAERS Safety Report 14678924 (Version 2)
Quarter: 2018Q2

REPORT INFORMATION
  Report Type: Spontaneous
  Country: DE (occurrence: DE)
  Receive Date: 20180326
  Receipt Date: 20180611
  Transmission Date: 20180711
  Serious: Yes (Other)
  Sender: FDA-Public Use
  Company Number: DE-ACCORD-064558

PATIENT
  Sex: Female

DRUGS (3)
  1. VALDOXAN [Suspect]
     Active Substance: AGOMELATINE
     Indication: DEPRESSION
     Dosage: ALSO RECEIVED UNKNOWN DOSE FROM UNKNOWN DATE
     Dates: start: 20170501
  2. ESCITALOPRAM [Suspect]
     Active Substance: ESCITALOPRAM OXALATE
     Indication: DEPRESSION
     Dosage: DAILY
     Dates: start: 20170501
  3. ZOELY [Suspect]
     Active Substance: ESTRADIOL\NOMEGESTROL ACETATE
     Indication: CONTRACEPTION
     Dosage: ONE TABLET A DAY
     Route: 048
     Dates: start: 20130301

REACTIONS (3)
  - Menorrhagia [Unknown]
  - Dysmenorrhoea [Unknown]
  - Amenorrhoea [Unknown]

NARRATIVE: CASE EVENT DATE: 2017
